FAERS Safety Report 14909188 (Version 1)
Quarter: 2018Q2

REPORT INFORMATION
  Report Type: Spontaneous
  Country: TR (occurrence: TR)
  Receive Date: 20180517
  Receipt Date: 20180517
  Transmission Date: 20180711
  Serious: Yes (Hospitalization)
  Sender: FDA-Public Use
  Company Number: TR-SA-2018SA137817

PATIENT
  Age: 16 Year
  Sex: Female

DRUGS (22)
  1. PREDNISONE. [Suspect]
     Active Substance: PREDNISONE
     Indication: RENAL TRANSPLANT
     Route: 048
  2. PREDNISONE. [Suspect]
     Active Substance: PREDNISONE
     Indication: RENAL TRANSPLANT
     Route: 048
  3. MYCOPHENOLATE MOFETIL. [Suspect]
     Active Substance: MYCOPHENOLATE MOFETIL
     Indication: IMMUNOSUPPRESSION
     Route: 065
  4. SULBACTAM/CEFOPERAZONE [Concomitant]
     Indication: FUNGAL INFECTION
     Route: 065
  5. PREDNISONE. [Suspect]
     Active Substance: PREDNISONE
     Indication: IMMUNOSUPPRESSION
     Route: 048
  6. ANTI-THYMOCYTE GLOBULIN (RABBIT) NOS [Suspect]
     Active Substance: LAPINE T-LYMPHOCYTE IMMUNE GLOBULIN
     Indication: RENAL TRANSPLANT
     Route: 065
  7. PREDNISOLONE. [Suspect]
     Active Substance: PREDNISOLONE
     Indication: IMMUNOSUPPRESSION
     Route: 065
  8. TACROLIMUS. [Suspect]
     Active Substance: TACROLIMUS
     Indication: RENAL TRANSPLANT
     Route: 065
  9. FLUCONAZOLE. [Suspect]
     Active Substance: FLUCONAZOLE
     Indication: FUNGAL INFECTION
     Route: 065
  10. TACROLIMUS. [Suspect]
     Active Substance: TACROLIMUS
     Indication: IMMUNOSUPPRESSION
     Route: 065
  11. TEICOPLANIN [Concomitant]
     Active Substance: TEICOPLANIN
     Indication: FUNGAL INFECTION
     Route: 065
  12. MYCOPHENOLATE MOFETIL. [Suspect]
     Active Substance: MYCOPHENOLATE MOFETIL
     Indication: IMMUNOSUPPRESSION
     Dosage: DOSE REDUCED
     Route: 065
  13. ANTI-THYMOCYTE GLOBULIN (RABBIT) NOS [Suspect]
     Active Substance: LAPINE T-LYMPHOCYTE IMMUNE GLOBULIN
     Indication: IMMUNOSUPPRESSION
     Route: 065
  14. PREDNISOLONE. [Suspect]
     Active Substance: PREDNISOLONE
     Indication: RENAL TRANSPLANT
     Route: 065
  15. VORICONAZOLE. [Suspect]
     Active Substance: VORICONAZOLE
     Indication: FUNGAL INFECTION
     Route: 065
  16. CASPOFUNGIN ACETATE. [Suspect]
     Active Substance: CASPOFUNGIN ACETATE
     Indication: FUNGAL INFECTION
     Route: 065
  17. TACROLIMUS. [Suspect]
     Active Substance: TACROLIMUS
     Indication: IMMUNOSUPPRESSION
     Route: 065
  18. MYCOPHENOLATE MOFETIL. [Suspect]
     Active Substance: MYCOPHENOLATE MOFETIL
     Indication: RENAL TRANSPLANT
     Route: 065
  19. TACROLIMUS. [Suspect]
     Active Substance: TACROLIMUS
     Indication: RENAL TRANSPLANT
     Route: 065
  20. TRIMETHOPRIM/SULFAMETHOXAZOLE [Concomitant]
     Indication: PROPHYLAXIS
     Route: 065
  21. MYCOPHENOLATE MOFETIL. [Suspect]
     Active Substance: MYCOPHENOLATE MOFETIL
     Indication: RENAL TRANSPLANT
     Dosage: DOSE REDUCED
     Route: 065
  22. PREDNISONE. [Suspect]
     Active Substance: PREDNISONE
     Indication: IMMUNOSUPPRESSION
     Route: 048

REACTIONS (16)
  - Oedema [Recovered/Resolved]
  - Lung infiltration [Recovered/Resolved]
  - Abdominal tenderness [Recovered/Resolved]
  - Debridement [Recovered/Resolved]
  - Cellulitis [Unknown]
  - Drug ineffective [Unknown]
  - Condition aggravated [Recovered/Resolved]
  - Cough [Recovered/Resolved]
  - Vision blurred [Unknown]
  - Swelling [Recovered/Resolved]
  - Abscess [Recovered/Resolved]
  - Hypoxia [Recovered/Resolved]
  - Dyspnoea [Recovered/Resolved]
  - Fungal infection [Recovered/Resolved]
  - Pain [Recovered/Resolved]
  - Oxygen saturation decreased [Recovered/Resolved]
